FAERS Safety Report 17292486 (Version 1)
Quarter: 2020Q1

REPORT INFORMATION
  Report Type: Spontaneous
  Country: US (occurrence: US)
  Receive Date: 20191231
  Receipt Date: 20191231
  Transmission Date: 20200409
  Serious: Yes (Life-Threatening, Disabling)
  Sender: FDA-Public Use
  Company Number: None

PATIENT
  Age: 36 Year
  Sex: Female

DRUGS (4)
  1. LAMICTAL [Concomitant]
     Active Substance: LAMOTRIGINE
  2. FOLIC ACID. [Concomitant]
     Active Substance: FOLIC ACID
  3. TEGRETAL [Concomitant]
     Active Substance: CARBAMAZEPINE
  4. ZYPREXA [Suspect]
     Active Substance: OLANZAPINE
     Indication: PROPHYLAXIS
     Route: 048
     Dates: start: 199812, end: 199901

REACTIONS (14)
  - Coma [None]
  - Seizure [None]
  - Neuropathy peripheral [None]
  - Blindness [None]
  - Fall [None]
  - Type 1 diabetes mellitus [None]
  - Pancreatitis [None]
  - Weight decreased [None]
  - Renal disorder [None]
  - Abortion spontaneous [None]
  - Limb injury [None]
  - Impaired work ability [None]
  - Chest pain [None]
  - Staphylococcal infection [None]
